FAERS Safety Report 4384054-7 (Version None)
Quarter: 2004Q2

REPORT INFORMATION
  Report Type: 
  Country: None (occurrence: None)
  Receive Date: 20040621
  Receipt Date: 20040611
  Transmission Date: 20050107
  Serious: Yes (Other)
  Sender: FDA-Public Use
  Company Number: 2004-06-0611

PATIENT
  Age: 80 Year
  Sex: Female

DRUGS (1)
  1. AERIUS (DESLORATADINE) TABLETS  'LIKE CLARINEX' [Suspect]
     Indication: ECZEMA
     Dosage: 5 MG QD ORAL
     Route: 048

REACTIONS (1)
  - ANGIONEUROTIC OEDEMA [None]
